FAERS Safety Report 13619316 (Version 1)
Quarter: 2017Q2

REPORT INFORMATION
  Report Type: Spontaneous
  Country: US (occurrence: US)
  Receive Date: 20170606
  Receipt Date: 20170606
  Transmission Date: 20170830
  Serious: Yes (Other)
  Sender: FDA-Public Use
  Company Number: None

PATIENT
  Age: 58 Year
  Sex: Male
  Weight: 88.02 kg

DRUGS (8)
  1. METFORMIN [Concomitant]
     Active Substance: METFORMIN HYDROCHLORIDE
  2. CELEXA [Suspect]
     Active Substance: CITALOPRAM HYDROBROMIDE
     Indication: DEPRESSION
     Route: 048
     Dates: start: 20170509, end: 20170601
  3. CELEXA [Suspect]
     Active Substance: CITALOPRAM HYDROBROMIDE
     Indication: ANXIETY
     Route: 048
     Dates: start: 20170509, end: 20170601
  4. LISINOPRIL. [Concomitant]
     Active Substance: LISINOPRIL
  5. XANAX [Concomitant]
     Active Substance: ALPRAZOLAM
  6. ZOCOR [Concomitant]
     Active Substance: SIMVASTATIN
  7. LANTUS [Concomitant]
     Active Substance: INSULIN GLARGINE
  8. NEXIUM [Concomitant]
     Active Substance: ESOMEPRAZOLE MAGNESIUM

REACTIONS (5)
  - Blood glucose increased [None]
  - Fall [None]
  - Arthralgia [None]
  - Joint swelling [None]
  - Blood glucose decreased [None]

NARRATIVE: CASE EVENT DATE: 20170509
